FAERS Safety Report 6228661-5 (Version None)
Quarter: 2009Q2

REPORT INFORMATION
  Report Type: 
  Country: None (occurrence: None)
  Receive Date: 20090614
  Receipt Date: 20090604
  Transmission Date: 20091009
  Serious: Yes (Other)
  Sender: FDA-Public Use
  Company Number: PHHY2009FR22160

PATIENT
  Sex: Female

DRUGS (1)
  1. GLEEVEC [Suspect]
     Dosage: UNK
     Dates: end: 20080101

REACTIONS (2)
  - VISUAL ACUITY REDUCED [None]
  - VISUAL IMPAIRMENT [None]
